FAERS Safety Report 17921039 (Version 1)
Quarter: 2020Q2

REPORT INFORMATION
  Report Type: Report from Study
  Country: ES (occurrence: ES)
  Receive Date: 20200622
  Receipt Date: 20200622
  Transmission Date: 20200714
  Serious: Yes (Other)
  Sender: FDA-Public Use
  Company Number: ES-TEVA-2020-ES-1788897

PATIENT
  Age: 59 Year
  Sex: Male

DRUGS (6)
  1. FENTANILO (1543A) [Suspect]
     Active Substance: FENTANYL
     Indication: MAINTENANCE OF ANAESTHESIA
     Dosage: ANESTHESIA MAINTENANCE
     Route: 042
     Dates: start: 20200521, end: 20200521
  2. TACROLIMUS (2694A) [Suspect]
     Active Substance: TACROLIMUS
     Indication: PROPHYLAXIS AGAINST GRAFT VERSUS HOST DISEASE
     Dosage: 4 MILLIGRAM DAILY;
     Route: 048
     Dates: start: 20200519
  3. MICOFENOLATO DE MOFETILO (7330LM) [Suspect]
     Active Substance: MYCOPHENOLATE MOFETIL
     Indication: PROPHYLAXIS AGAINST GRAFT VERSUS HOST DISEASE
     Dosage: 250 MILLIGRAM DAILY;
     Route: 048
     Dates: start: 20200519, end: 20200521
  4. DEXAMETASONA (722A) [Suspect]
     Active Substance: DEXAMETHASONE
     Indication: PROPHYLAXIS OF NAUSEA AND VOMITING
     Dosage: 4 MG IV
     Route: 042
     Dates: start: 20200521, end: 20200521
  5. SEVOFLURANO (7339A) [Suspect]
     Active Substance: SEVOFLURANE
     Indication: MAINTENANCE OF ANAESTHESIA
     Dosage: ANESTHESIA MAINTENANCE
     Route: 042
     Dates: start: 20200521, end: 20200521
  6. PROPOFOL (2373A) [Suspect]
     Active Substance: PROPOFOL
     Indication: INDUCTION OF ANAESTHESIA
     Dosage: 40MG
     Route: 042
     Dates: start: 20200521, end: 20200521

REACTIONS (1)
  - Pancreatitis acute [Recovered/Resolved]

NARRATIVE: CASE EVENT DATE: 20200522
